FAERS Safety Report 22520493 (Version 1)
Quarter: 2023Q2

REPORT INFORMATION
  Report Type: Spontaneous
  Country: JP (occurrence: JP)
  Receive Date: 20230605
  Receipt Date: 20230605
  Transmission Date: 20230721
  Serious: Yes (Hospitalization, Other)
  Sender: FDA-Public Use
  Company Number: JP-GLAXOSMITHKLINE-JP2023JPN076164

PATIENT

DRUGS (2)
  1. FLOLAN [Suspect]
     Active Substance: EPOPROSTENOL SODIUM
     Indication: Pulmonary hypertension
     Dosage: UNK
  2. SELEXIPAG [Concomitant]
     Active Substance: SELEXIPAG
     Indication: Pulmonary hypertension
     Dosage: UNK

REACTIONS (11)
  - Hypopituitarism [Unknown]
  - Hyperthyroidism [Recovered/Resolved]
  - Amenorrhoea [Unknown]
  - Temperature intolerance [Unknown]
  - Decreased appetite [Unknown]
  - Hypotension [Unknown]
  - Hyponatraemia [Unknown]
  - Eosinophil count increased [Unknown]
  - Intracranial mass [Recovering/Resolving]
  - Goitre [Unknown]
  - Hypophysitis [Unknown]
